FAERS Safety Report 16766256 (Version 6)
Quarter: 2025Q4

REPORT INFORMATION
  Report Type: Other
  Country: EU (occurrence: EU)
  Receive Date: 20190903
  Receipt Date: 20251107
  Transmission Date: 20260117
  Serious: Yes (Death, Life-Threatening, Hospitalization, Other)
  Sender: MACLEODS
  Company Number: None

PATIENT

DRUGS (22)
  1. OLANZAPINE [Suspect]
     Active Substance: OLANZAPINE
     Indication: Bipolar disorder
     Dosage: 10 MILLIGRAM, QD
     Route: 048
  2. OLANZAPINE [Suspect]
     Active Substance: OLANZAPINE
     Dosage: 10 MILLIGRAM, QD, HARD CAPSULE
     Route: 048
  3. ARIPIPRAZOLE [Suspect]
     Active Substance: ARIPIPRAZOLE
     Indication: Bipolar disorder
     Dosage: 7.5 MILLIGRAM, QD TABLET
     Route: 048
  4. PANTOPRAZOLE [Suspect]
     Active Substance: PANTOPRAZOLE
     Indication: Gastrooesophageal reflux disease
     Dosage: 40 MILLIGRAM, QD
     Route: 048
  5. PANTOPRAZOLE [Suspect]
     Active Substance: PANTOPRAZOLE
     Indication: Reflux gastritis
     Dosage: 10 MILLIGRAM, QD
     Route: 048
  6. LEVOFLOXACIN [Suspect]
     Active Substance: LEVOFLOXACIN
     Indication: Bacterial infection
     Dosage: UNK
     Route: 065
  7. LEVOFLOXACIN [Suspect]
     Active Substance: LEVOFLOXACIN
     Indication: Antibiotic therapy
  8. AMOXICILLIN\CLAVULANATE POTASSIUM [Suspect]
     Active Substance: AMOXICILLIN\CLAVULANATE POTASSIUM
     Indication: Urinary tract infection
     Dosage: UNK
     Route: 065
  9. AMOXICILLIN\CLAVULANATE POTASSIUM [Suspect]
     Active Substance: AMOXICILLIN\CLAVULANATE POTASSIUM
     Indication: Bacterial test positive
     Dosage: UNK
     Route: 065
  10. CEFUROXIME [Suspect]
     Active Substance: CEFUROXIME
     Indication: Urinary tract infection
     Dosage: 50 MILLIGRAM, QD
     Route: 048
  11. CEFUROXIME [Suspect]
     Active Substance: CEFUROXIME
     Indication: Bacterial infection
  12. CEFUROXIME [Suspect]
     Active Substance: CEFUROXIME
     Indication: Antibiotic therapy
  13. CIPROFLOXACIN [Suspect]
     Active Substance: CIPROFLOXACIN
     Indication: Urinary tract infection
     Dosage: UNK
     Route: 065
  14. CIPROFLOXACIN [Suspect]
     Active Substance: CIPROFLOXACIN
     Indication: Bacterial test positive
     Dosage: UNK
     Route: 065
  15. CIPROFLOXACIN [Suspect]
     Active Substance: CIPROFLOXACIN
     Indication: Antibiotic therapy
  16. COTRIMOXAZOLE [Suspect]
     Active Substance: SULFAMETHOXAZOLE\TRIMETHOPRIM
     Indication: Bacterial infection
     Dosage: TRIMETHOPRIM/SULFAMETHOXAZOLE
     Route: 065
  17. COTRIMOXAZOLE [Suspect]
     Active Substance: SULFAMETHOXAZOLE\TRIMETHOPRIM
     Indication: Bacteriuria
     Dosage: TRIMETHOPRIM/SULFAMETHOXAZOLE
     Route: 065
  18. NIFUROXAZIDE [Suspect]
     Active Substance: NIFUROXAZIDE
     Indication: Diarrhoea
     Dosage: UNK
     Route: 065
  19. NIFUROXAZIDE [Suspect]
     Active Substance: NIFUROXAZIDE
     Indication: Urinary tract infection
     Dosage: UNK
     Route: 065
  20. NIFUROXAZIDE [Suspect]
     Active Substance: NIFUROXAZIDE
     Indication: Abdominal pain
     Dosage: UNK
     Route: 065
  21. ITOPRIDE HYDROCHLORIDE [Suspect]
     Active Substance: ITOPRIDE HYDROCHLORIDE
     Indication: Gastrooesophageal reflux disease
     Dosage: 50 MG, QD
     Route: 048
  22. ITOPRIDE HYDROCHLORIDE [Suspect]
     Active Substance: ITOPRIDE HYDROCHLORIDE
     Indication: Reflux gastritis
     Dosage: 150 MILLIGRAM, QD, 50 MILLIGRAM, TID
     Route: 048

REACTIONS (33)
  - Intestinal perforation [Fatal]
  - Peritonitis [Fatal]
  - Bacterial test positive [Fatal]
  - Parosmia [Fatal]
  - Megacolon [Fatal]
  - Clostridium difficile infection [Fatal]
  - Pseudomembranous colitis [Fatal]
  - Diarrhoea [Fatal]
  - Pyrexia [Fatal]
  - Drug ineffective [Fatal]
  - Gastrooesophageal reflux disease [Fatal]
  - White blood cells urine [Fatal]
  - Dyspepsia [Fatal]
  - Condition aggravated [Fatal]
  - Drug interaction [Fatal]
  - Gastrointestinal perforation [Fatal]
  - Abdominal pain upper [Fatal]
  - Trimethylaminuria [Fatal]
  - Urine odour abnormal [Fatal]
  - Dysbiosis [Unknown]
  - Condition aggravated [Not Recovered/Not Resolved]
  - Drug resistance [Unknown]
  - Dysbiosis [Not Recovered/Not Resolved]
  - Oral discomfort [Unknown]
  - Inhibitory drug interaction [Not Recovered/Not Resolved]
  - Taste disorder [Not Recovered/Not Resolved]
  - Urine odour abnormal [Not Recovered/Not Resolved]
  - Breath odour [Unknown]
  - Drug ineffective [Unknown]
  - Parosmia [Unknown]
  - Condition aggravated [Not Recovered/Not Resolved]
  - Bacterial test positive [Unknown]
  - Potentiating drug interaction [Unknown]
